FAERS Safety Report 21945392 (Version 4)
Quarter: 2023Q2

REPORT INFORMATION
  Report Type: Spontaneous
  Country: IR (occurrence: IR)
  Receive Date: 20230202
  Receipt Date: 20230502
  Transmission Date: 20230721
  Serious: Yes (Other)
  Sender: FDA-Public Use
  Company Number: IR-BAYER-2023P006739

PATIENT
  Age: 19 Year
  Sex: Male

DRUGS (2)
  1. ANTIHEMOPHILIC FACTOR, HUMAN RECOMBINANT [Suspect]
     Active Substance: ANTIHEMOPHILIC FACTOR, HUMAN RECOMBINANT
     Indication: Haemorrhage
     Dosage: UNK (TO TREAT BLEEDING EPISODES)
  2. ANTIHEMOPHILIC FACTOR, HUMAN RECOMBINANT [Suspect]
     Active Substance: ANTIHEMOPHILIC FACTOR, HUMAN RECOMBINANT
     Indication: Factor VIII deficiency
     Dosage: UNK (50 U/KG RFVIII WAS ADMINISTERED BEFORESURGERY AND 35 U/KG UNITS 3 HOURS POSTOPERATION)

REACTIONS (3)
  - Compartment syndrome [None]
  - Haemarthrosis [Recovered/Resolved]
  - Drug ineffective [None]
